FAERS Safety Report 17959994 (Version 3)
Quarter: 2020Q4

REPORT INFORMATION
  Report Type: Spontaneous
  Country: US (occurrence: US)
  Receive Date: 20200629
  Receipt Date: 20201014
  Transmission Date: 20210113
  Serious: No
  Sender: FDA-Public Use
  Company Number: US-BAUSCH-BL-2020-017878

PATIENT
  Age: 62 Year
  Sex: Female
  Weight: 68.1 kg

DRUGS (6)
  1. LEVOXYL [Concomitant]
     Active Substance: LEVOTHYROXINE SODIUM
     Indication: PRODUCT USED FOR UNKNOWN INDICATION
     Route: 048
  2. ALIGN [Suspect]
     Active Substance: BIFIDOBACTERIUM LONGUM SUBSP. INFANTIS
     Indication: DIARRHOEA
     Route: 048
  3. ALIGN [Suspect]
     Active Substance: BIFIDOBACTERIUM LONGUM SUBSP. INFANTIS
     Dosage: STARTED ALONG WITH XIFAXAN
     Route: 048
     Dates: start: 2020, end: 2020
  4. IMODIUM [Concomitant]
     Active Substance: LOPERAMIDE HYDROCHLORIDE
     Indication: DIARRHOEA
     Dosage: AS DIRECTED
     Route: 048
     Dates: start: 202006
  5. XIFAXAN [Suspect]
     Active Substance: RIFAXIMIN
     Indication: PATHOGEN RESISTANCE
     Dosage: PATIENT HAD 2, TWO WEEK CYCLES OF XIFAXAN, ONE RIGHT AFTER THE OTHER
     Route: 048
     Dates: start: 202003, end: 2020
  6. CITRUCEL [Suspect]
     Active Substance: METHYLCELLULOSE (4000 MPA.S)
     Indication: DIARRHOEA
     Route: 048

REACTIONS (1)
  - Frequent bowel movements [Not Recovered/Not Resolved]

NARRATIVE: CASE EVENT DATE: 2020
